FAERS Safety Report 5658319-2 (Version None)
Quarter: 2008Q1

REPORT INFORMATION
  Report Type: 
  Country: None (occurrence: None)
  Receive Date: 20080310
  Receipt Date: 20070126
  Transmission Date: 20080703
  Serious: No
  Sender: FDA-Public Use
  Company Number: US-BAYER-200710304BCC

PATIENT
  Age: 48 Year
  Sex: Female
  Weight: 113 kg

DRUGS (5)
  1. ALEVE [Suspect]
     Indication: MIGRAINE
     Route: 048
     Dates: start: 20030101
  2. METFORMIN HCL [Concomitant]
  3. PAXIL [Concomitant]
  4. TOPROL-XL [Concomitant]
  5. HYDROCHLOROTHIAZIDE [Concomitant]

REACTIONS (1)
  - MIGRAINE [None]
